FAERS Safety Report 20748271 (Version 1)
Quarter: 2022Q2

REPORT INFORMATION
  Report Type: Spontaneous
  Country: BE (occurrence: BE)
  Receive Date: 20220426
  Receipt Date: 20220426
  Transmission Date: 20220720
  Serious: Yes (Hospitalization, Other)
  Sender: FDA-Public Use
  Company Number: BE-LUPIN PHARMACEUTICALS INC.-2022-06043

PATIENT
  Age: 66 Year
  Sex: Male

DRUGS (13)
  1. BIMATOPROST [Suspect]
     Active Substance: BIMATOPROST
     Indication: Ocular hypertension
     Dosage: UNK UNK, QD (BOTH EYES)
     Route: 061
  2. BETAMETHASONE [Suspect]
     Active Substance: BETAMETHASONE
     Indication: Eye inflammation
     Dosage: UNK
     Route: 057
  3. BRIMONIDINE TARTRATE\TIMOLOL MALEATE [Suspect]
     Active Substance: BRIMONIDINE TARTRATE\TIMOLOL MALEATE
     Indication: Ocular hypertension
     Dosage: UNK UNK, BID (BOTH EYES)
     Route: 061
  4. DEXAMETHASONE [Suspect]
     Active Substance: DEXAMETHASONE
     Indication: Eye inflammation
     Dosage: UNK (3 TIMES A DAY IN THE RE AND 6 TIMES A DAY IN LE)
     Route: 061
  5. DEXAMETHASONE [Suspect]
     Active Substance: DEXAMETHASONE
     Dosage: UNK (ONCE EVERY FOUR HOUR)
     Route: 061
  6. HYDROCORTISONE\OXYTETRACYCLINE [Suspect]
     Active Substance: HYDROCORTISONE\OXYTETRACYCLINE
     Indication: Eye inflammation
     Dosage: UNK (BEFORE BEDTIME)
     Route: 061
  7. MITOMYCIN [Concomitant]
     Active Substance: MITOMYCIN
     Indication: Product used for unknown indication
     Dosage: UNK (IN THE RE)
     Route: 065
  8. FLUOROURACIL [Concomitant]
     Active Substance: FLUOROURACIL
     Indication: Prophylaxis
     Dosage: UNK
     Route: 057
  9. FLUOROMETHOLONE [Concomitant]
     Active Substance: FLUOROMETHOLONE
     Indication: Eye inflammation
     Dosage: UNK
     Route: 061
  10. CARTEOLOL [Concomitant]
     Active Substance: CARTEOLOL
     Indication: Ocular hypertension
     Dosage: UNK (ONLY IN THE LE)
     Route: 061
  11. MEMOPTIC [Concomitant]
     Indication: Product used for unknown indication
     Dosage: UNK
     Route: 048
  12. TOBRAMYCIN AND DEXAMETHASONE [Concomitant]
     Active Substance: DEXAMETHASONE\TOBRAMYCIN
     Indication: Product used for unknown indication
     Dosage: UNK, QID
     Route: 061
  13. DICLOFENAC [Concomitant]
     Active Substance: DICLOFENAC
     Indication: Product used for unknown indication
     Dosage: UNK, QID
     Route: 061

REACTIONS (3)
  - Ocular hyperaemia [Unknown]
  - Ocular surface disease [Unknown]
  - Drug ineffective [Unknown]
